FAERS Safety Report 8848031 (Version 1)
Quarter: 2012Q4

REPORT INFORMATION
  Report Type: 
  Country: GR (occurrence: GR)
  Receive Date: 20121018
  Receipt Date: 20121018
  Transmission Date: 20130627
  Serious: Yes (Other)
  Sender: FDA-Public Use
  Company Number: GR-PFIZER INC-2012256216

PATIENT
  Age: 4 Year
  Sex: Male

DRUGS (2)
  1. ZITHROMAX [Suspect]
     Indication: LARYNGITIS
     Dosage: UNK
     Route: 048
     Dates: start: 20121014
  2. DEXAMETHASONE SODIUM PHOSPHATE [Suspect]
     Indication: LARYNGITIS
     Dosage: UNK
     Route: 048
     Dates: start: 20121014

REACTIONS (1)
  - Hypothermia [Not Recovered/Not Resolved]
